FAERS Safety Report 11524323 (Version 1)
Quarter: 2015Q3

REPORT INFORMATION
  Report Type: Spontaneous
  Country: US (occurrence: US)
  Receive Date: 20150918
  Receipt Date: 20150918
  Transmission Date: 20151125
  Serious: No
  Sender: FDA-Public Use
  Company Number: US-BAYER-2015-417026

PATIENT
  Sex: Female

DRUGS (20)
  1. MACRODANTIN [Concomitant]
     Active Substance: NITROFURANTOIN
     Dosage: 100 MG, BID
     Route: 048
  2. COUMADIN [Concomitant]
     Active Substance: WARFARIN SODIUM
     Dosage: 2 MG, QD
     Route: 048
  3. PREMARIN [Concomitant]
     Active Substance: ESTROGENS, CONJUGATED
     Dosage: 0.625 MG, QD
     Route: 067
  4. AVAPRO [Concomitant]
     Active Substance: IRBESARTAN
     Dosage: 75 MG, QD
     Route: 048
  5. SUCRALFATE. [Concomitant]
     Active Substance: SUCRALFATE
     Dosage: 1 G, BID
     Route: 048
  6. TRIAMTERENE AND HYDROCHLOROTHIAZIDE [Concomitant]
     Active Substance: HYDROCHLOROTHIAZIDE\TRIAMTERENE
     Dosage: 37.5 MG, QD
     Route: 048
  7. CARVEDILOL. [Concomitant]
     Active Substance: CARVEDILOL
     Dosage: 6.25 MG, BID
     Route: 048
  8. BUMEX [Concomitant]
     Active Substance: BUMETANIDE
     Dosage: 0.5 MG, BID
     Route: 048
  9. PROTONIX [Concomitant]
     Active Substance: PANTOPRAZOLE SODIUM
     Dosage: 40 MG, QD
     Route: 048
  10. METHENAMINE [Concomitant]
     Active Substance: METHENAMINE
     Dosage: 1 G, BID
     Route: 048
  11. HYOSCYAMINE. [Concomitant]
     Active Substance: HYOSCYAMINE
     Dosage: 0.125 MG, TID
     Route: 060
  12. LYRICA [Concomitant]
     Active Substance: PREGABALIN
     Dosage: 75 MG, QD
     Route: 048
  13. ALPRAZOLAM. [Concomitant]
     Active Substance: ALPRAZOLAM
     Dosage: 0.25 MG, HS
     Route: 048
  14. POTASSIUM CHLORIDE. [Concomitant]
     Active Substance: POTASSIUM CHLORIDE
     Dosage: 10 MEQ, QOD
  15. CIPRO [Suspect]
     Active Substance: CIPROFLOXACIN HYDROCHLORIDE
     Dosage: UNK
  16. CARAFATE [Concomitant]
     Active Substance: SUCRALFATE
     Dosage: 1 G, BID
     Route: 048
  17. JANTOVEN [Concomitant]
     Active Substance: WARFARIN SODIUM
     Dosage: 2 MG, QD
     Route: 048
  18. METHENAMINE HIPPURATE [METHENAMINE HIPPURATE] [Concomitant]
     Dosage: 1 G, BID
     Route: 048
  19. ESTRACE [Concomitant]
     Active Substance: ESTRADIOL
     Dosage: 0.1 MG, QD
     Route: 067
  20. PLAQUENIL [Concomitant]
     Active Substance: HYDROXYCHLOROQUINE SULFATE
     Dosage: 200 MG, BID
     Route: 048

REACTIONS (2)
  - Drug hypersensitivity [None]
  - Dyspepsia [None]
